FAERS Safety Report 9868312 (Version 1)
Quarter: 2014Q1

REPORT INFORMATION
  Report Type: Spontaneous
  Country: JP (occurrence: JP)
  Receive Date: 20140204
  Receipt Date: 20140204
  Transmission Date: 20141002
  Serious: Yes (Hospitalization)
  Sender: FDA-Public Use
  Company Number: JP-MERCK-1402JPN000458

PATIENT
  Age: 90 Year
  Sex: Female

DRUGS (3)
  1. GLACTIV [Suspect]
     Indication: TYPE 2 DIABETES MELLITUS
     Dosage: 50 MG, QD
     Route: 048
  2. MIGLITOL [Concomitant]
     Dosage: 150 MG, QD
  3. GLIMEPIRIDE [Concomitant]
     Dosage: 3 MG, QD

REACTIONS (1)
  - Hypoglycaemia [Unknown]
